FAERS Safety Report 24211257 (Version 1)
Quarter: 2024Q3

REPORT INFORMATION
  Report Type: Spontaneous
  Country: DE (occurrence: None)
  Receive Date: 20240814
  Receipt Date: 20240814
  Transmission Date: 20241017
  Serious: Yes (Other)
  Sender: ASTRAZENECA
  Company Number: 2024A184566

PATIENT
  Age: 41 Year
  Sex: Female
  Weight: 90 kg

DRUGS (7)
  1. QUETIAPINE [Suspect]
     Active Substance: QUETIAPINE
     Indication: Depression
     Route: 048
     Dates: start: 20200301, end: 20231201
  2. QUETIAPINE [Suspect]
     Active Substance: QUETIAPINE
     Indication: Schizophrenia
     Route: 048
     Dates: start: 20200301, end: 20231201
  3. HALOPERIDOL [Suspect]
     Active Substance: HALOPERIDOL
     Dates: start: 202306
  4. ESCITALOPRAM [Suspect]
     Active Substance: ESCITALOPRAM OXALATE
     Dates: start: 202306
  5. SERTRALINE [Suspect]
     Active Substance: SERTRALINE HYDROCHLORIDE
  6. TAVOR (LORAZEPAM) [Suspect]
     Active Substance: LORAZEPAM
     Dates: start: 2020, end: 2023
  7. ABILIFY [Suspect]
     Active Substance: ARIPIPRAZOLE

REACTIONS (8)
  - Hallucination [Unknown]
  - Weight increased [Not Recovered/Not Resolved]
  - Feeling abnormal [Unknown]
  - Sedation [Recovering/Resolving]
  - Increased appetite [Recovering/Resolving]
  - Menopause [Unknown]
  - Tooth loss [Recovered/Resolved with Sequelae]
  - Poor peripheral circulation [Unknown]

NARRATIVE: CASE EVENT DATE: 20200301
